FAERS Safety Report 18854831 (Version 1)
Quarter: 2021Q1

REPORT INFORMATION
  Report Type: Spontaneous
  Country: DE (occurrence: DE)
  Receive Date: 20210206
  Receipt Date: 20210206
  Transmission Date: 20210420
  Serious: Yes (Hospitalization, Other)
  Sender: FDA-Public Use
  Company Number: DE-AUROBINDO-AUR-APL-2021-004776

PATIENT
  Age: 70 Year
  Sex: Female

DRUGS (4)
  1. BARICITINIB. [Suspect]
     Active Substance: BARICITINIB
     Indication: RHEUMATOID ARTHRITIS
     Dosage: UNK UNK, DAILY
     Route: 048
     Dates: start: 20181216
  2. PROLIA [Suspect]
     Active Substance: DENOSUMAB
     Indication: PRODUCT USED FOR UNKNOWN INDICATION
     Dosage: UNK
     Route: 065
  3. LODOTRA [Concomitant]
     Active Substance: PREDNISONE
     Indication: PRODUCT USED FOR UNKNOWN INDICATION
     Dosage: UNK
     Route: 065
  4. LIDOCAINE. [Suspect]
     Active Substance: LIDOCAINE
     Indication: ANAESTHESIA
     Dosage: UNK, UNKNOWN
     Route: 065
     Dates: start: 202008

REACTIONS (8)
  - Heart rate increased [Not Recovered/Not Resolved]
  - Peripheral swelling [Not Recovered/Not Resolved]
  - Hypertension [Not Recovered/Not Resolved]
  - Pain in extremity [Recovering/Resolving]
  - Tooth loss [Not Recovered/Not Resolved]
  - Dyspnoea [Not Recovered/Not Resolved]
  - Syncope [Recovered/Resolved]
  - Musculoskeletal stiffness [Not Recovered/Not Resolved]

NARRATIVE: CASE EVENT DATE: 202008
